FAERS Safety Report 23903114 (Version 2)
Quarter: 2024Q2

REPORT INFORMATION
  Report Type: Report from Study
  Country: ES (occurrence: ES)
  Receive Date: 20240527
  Receipt Date: 20240619
  Transmission Date: 20240716
  Serious: Yes (Hospitalization)
  Sender: FDA-Public Use
  Company Number: ES-Merck Healthcare KGaA-2024028007

PATIENT
  Age: 8 Year
  Sex: Female

DRUGS (2)
  1. SAIZEN [Suspect]
     Active Substance: SOMATROPIN
     Indication: Product used for unknown indication
     Route: 058
     Dates: start: 20230127
  2. SAIZEN [Suspect]
     Active Substance: SOMATROPIN
     Route: 058

REACTIONS (2)
  - Pseudopapilloedema [Recovering/Resolving]
  - Intracranial pressure increased [Recovering/Resolving]

NARRATIVE: CASE EVENT DATE: 20240521
